FAERS Safety Report 13635431 (Version 5)
Quarter: 2018Q2

REPORT INFORMATION
  Report Type: Spontaneous
  Country: US (occurrence: US)
  Receive Date: 20170609
  Receipt Date: 20180403
  Transmission Date: 20180711
  Serious: Yes (Other)
  Sender: FDA-Public Use
  Company Number: US-PFIZER INC-2017252095

PATIENT
  Age: 65 Year
  Sex: Female

DRUGS (1)
  1. XELJANZ XR [Suspect]
     Active Substance: TOFACITINIB CITRATE
     Indication: RHEUMATOID ARTHRITIS
     Dosage: 11 MG, 1X/DAY
     Route: 048
     Dates: start: 201704

REACTIONS (7)
  - Condition aggravated [Unknown]
  - Blood iron decreased [Unknown]
  - Diverticulitis [Unknown]
  - Urinary tract infection [Unknown]
  - Blood pressure increased [Unknown]
  - Cystitis [Recovering/Resolving]
  - Weight increased [Unknown]
